FAERS Safety Report 7275887-8 (Version None)
Quarter: 2011Q1

REPORT INFORMATION
  Report Type: 
  Country: None (occurrence: None)
  Receive Date: 20110204
  Receipt Date: 20110128
  Transmission Date: 20110831
  Serious: Yes (Hospitalization)
  Sender: FDA-Public Use
  Company Number: A0782969A

PATIENT
  Age: 59 Year
  Sex: Male
  Weight: 97.7 kg

DRUGS (11)
  1. ZOCOR [Concomitant]
  2. LOTREL [Concomitant]
  3. METFORMIN HCL [Concomitant]
  4. METOPROLOL TARTRATE [Concomitant]
  5. NORCO [Concomitant]
  6. AVANDIA [Suspect]
     Indication: DIABETES MELLITUS
     Dosage: 4MG TWICE PER DAY
     Route: 048
     Dates: end: 20070301
  7. DIOVAN [Concomitant]
  8. LOTREL [Concomitant]
  9. CATAPRES [Concomitant]
  10. FLOMAX [Concomitant]
  11. NORVASC [Concomitant]

REACTIONS (2)
  - BRAIN INJURY [None]
  - CEREBROVASCULAR ACCIDENT [None]
